FAERS Safety Report 18178057 (Version 1)
Quarter: 2020Q3

REPORT INFORMATION
  Report Type: Spontaneous
  Country: US (occurrence: US)
  Receive Date: 20200820
  Receipt Date: 20200820
  Transmission Date: 20201103
  Serious: No
  Sender: FDA-Public Use
  Company Number: US-JAZZ-JPI-P-025750

PATIENT
  Sex: Female
  Weight: 50.91 kg

DRUGS (22)
  1. XYREM [Suspect]
     Active Substance: SODIUM OXYBATE
     Indication: NARCOLEPSY
     Dosage: UNK UNKNOWN, SINGLE
     Route: 048
     Dates: start: 20080319
  2. COLACE (DOCUSATE) [Concomitant]
  3. NASONEX [Concomitant]
     Active Substance: MOMETASONE FUROATE
  4. CLONAZEPAM. [Concomitant]
     Active Substance: CLONAZEPAM
  5. PROTONIX [Concomitant]
     Active Substance: PANTOPRAZOLE SODIUM
  6. FENTANYL TRANSDERMAL SYSTEM [Concomitant]
     Active Substance: FENTANYL
  7. TIZANIDINE. [Concomitant]
     Active Substance: TIZANIDINE
  8. NEURONTIN [Concomitant]
     Active Substance: GABAPENTIN
  9. IMITREX [Concomitant]
     Active Substance: SUMATRIPTAN SUCCINATE
  10. TREXIMET (SUMATRIPTAN AND NAPROXEN) [Concomitant]
  11. XYREM [Suspect]
     Active Substance: SODIUM OXYBATE
     Indication: SOMNOLENCE
     Dosage: 4.5 GRAM, BID
     Route: 048
  12. XYREM [Suspect]
     Active Substance: SODIUM OXYBATE
     Indication: INSOMNIA
  13. PROVIGIL [Concomitant]
     Active Substance: MODAFINIL
  14. PROAIR HFA [Concomitant]
     Active Substance: ALBUTEROL SULFATE
  15. NORVASC [Concomitant]
     Active Substance: AMLODIPINE BESYLATE
  16. METHYLPHENIDATE. [Concomitant]
     Active Substance: METHYLPHENIDATE
  17. VOLTAREN [Concomitant]
     Active Substance: DICLOFENAC SODIUM
  18. CHLORZOXAZONE. [Concomitant]
     Active Substance: CHLORZOXAZONE
  19. SINGULAIR (MONTELUKAST SODIUM) [Concomitant]
  20. LIPITOR [Concomitant]
     Active Substance: ATORVASTATIN CALCIUM
  21. EPIPEN PREN (EPINEPHRINE) [Concomitant]
  22. HYDROCODONE/ACETAMINOPHEN [Concomitant]
     Active Substance: ACETAMINOPHEN\HYDROCODONE

REACTIONS (2)
  - Weight fluctuation [Unknown]
  - Tremor [Unknown]

NARRATIVE: CASE EVENT DATE: 2010
